FAERS Safety Report 12248601 (Version 1)
Quarter: 2016Q2

REPORT INFORMATION
  Report Type: Spontaneous
  Country: US (occurrence: US)
  Receive Date: 20160408
  Receipt Date: 20160408
  Transmission Date: 20160902
  Serious: No
  Sender: FDA-Public Use
  Company Number: US-PFIZER INC-2016167260

PATIENT
  Sex: Male

DRUGS (1)
  1. AMIODARONE HCL [Suspect]
     Active Substance: AMIODARONE HYDROCHLORIDE
     Dosage: UNK

REACTIONS (3)
  - Discomfort [Unknown]
  - Gait disturbance [Unknown]
  - Asthenia [Unknown]
